FAERS Safety Report 21893967 (Version 1)
Quarter: 2023Q1

REPORT INFORMATION
  Report Type: Spontaneous
  Country: US (occurrence: US)
  Receive Date: 20230121
  Receipt Date: 20230121
  Transmission Date: 20230418
  Serious: Yes (Other)
  Sender: FDA-Public Use
  Company Number: US-AUROBINDO-AUR-APL-2022-040175

PATIENT
  Age: 58 Year
  Sex: Male
  Weight: 86 kg

DRUGS (1)
  1. CLOZAPINE [Suspect]
     Active Substance: CLOZAPINE
     Indication: Product used for unknown indication
     Dosage: 500 MILLIGRAM (150MG, INDICATIONS WERE 100MG IN MORNING 100MG AT NOON AND 200MG AT NIGHT)
     Route: 048
     Dates: start: 20220926, end: 20220930

REACTIONS (1)
  - Neutropenia [Unknown]

NARRATIVE: CASE EVENT DATE: 20220926
